FAERS Safety Report 8936610 (Version 1)
Quarter: 2012Q4

REPORT INFORMATION
  Report Type: 
  Country: US (occurrence: US)
  Receive Date: 20121130
  Receipt Date: 20121130
  Transmission Date: 20130627
  Serious: Yes (Congenital Anomaly, Other)
  Sender: FDA-Public Use
  Company Number: US-PFIZER INC-2012297435

PATIENT
  Age: 7 Week
  Sex: Female
  Weight: 3 kg

DRUGS (2)
  1. ZOLOFT [Suspect]
     Indication: OBSESSIVE-COMPULSIVE DISORDER
     Dosage: 100 mg, UNK
     Route: 064
     Dates: start: 20010109
  2. WELLBUTRIN [Concomitant]
     Dosage: UNK
     Route: 064

REACTIONS (6)
  - Maternal exposure timing unspecified [Unknown]
  - Pulmonary valve stenosis [Unknown]
  - Tricuspid valve incompetence [Unknown]
  - Autism [Unknown]
  - Atrial septal defect [Recovered/Resolved]
  - Speech disorder developmental [Unknown]
